FAERS Safety Report 6653535-5 (Version None)
Quarter: 2010Q1

REPORT INFORMATION
  Report Type: 
  Country: None (occurrence: None)
  Receive Date: 20100326
  Receipt Date: 20100315
  Transmission Date: 20100710
  Serious: Yes (Death)
  Sender: FDA-Public Use
  Company Number: JP-AMGEN-US401767

PATIENT
  Age: 68 Year
  Sex: Male

DRUGS (4)
  1. ENBREL [Suspect]
     Indication: RHEUMATOID ARTHRITIS
     Route: 058
     Dates: start: 20091124, end: 20091202
  2. RHEUMATREX [Suspect]
     Indication: RHEUMATOID ARTHRITIS
     Route: 048
     Dates: start: 20091013, end: 20091120
  3. RHEUMATREX [Suspect]
     Route: 048
     Dates: start: 20091120, end: 20091124
  4. CELECOXIB [Concomitant]
     Dosage: UNKNOWN
     Route: 048
     Dates: start: 20091013

REACTIONS (3)
  - INTERSTITIAL LUNG DISEASE [None]
  - OROPHARYNGEAL PAIN [None]
  - THIRST [None]
